FAERS Safety Report 10555373 (Version 1)
Quarter: 2014Q4

REPORT INFORMATION
  Report Type: Report from Study
  Country: DE (occurrence: DE)
  Receive Date: 20141030
  Receipt Date: 20141030
  Transmission Date: 20150529
  Serious: Yes (Other)
  Sender: FDA-Public Use
  Company Number: PHHY2014DE140659

PATIENT
  Sex: Male

DRUGS (2)
  1. FEMIBION                           /01597501/ [Concomitant]
     Indication: PROPHYLAXIS OF NEURAL TUBE DEFECT
     Dosage: UNK UKN, UNK
     Route: 064
  2. VOLTAREN RESINAT [Suspect]
     Active Substance: DICLOFENAC
     Indication: PRODUCT USED FOR UNKNOWN INDICATION
     Dosage: MATERNAL DOSE 150 MG, QD
     Route: 064

REACTIONS (1)
  - Ductus arteriosus stenosis foetal [Recovered/Resolved]

NARRATIVE: CASE EVENT DATE: 2010
